FAERS Safety Report 15319793 (Version 1)
Quarter: 2018Q3

REPORT INFORMATION
  Report Type: Spontaneous
  Country: FR (occurrence: FR)
  Receive Date: 20180827
  Receipt Date: 20180827
  Transmission Date: 20181010
  Serious: Yes (Hospitalization)
  Sender: FDA-Public Use
  Company Number: FR-ROCHE-2174923

PATIENT
  Age: 65 Year
  Sex: Female

DRUGS (14)
  1. NOVATREX NOS [Suspect]
     Active Substance: AZITHROMYCIN OR METHOTREXATE SODIUM
     Indication: RHEUMATOID ARTHRITIS
     Dosage: 2.5 MG, UNK
     Route: 048
     Dates: start: 200504, end: 200610
  2. LEVOTHYROX [Concomitant]
     Active Substance: LEVOTHYROXINE
     Route: 065
  3. MABTHERA [Suspect]
     Active Substance: RITUXIMAB
     Indication: PRODUCT USED FOR UNKNOWN INDICATION
     Dosage: CYCLIC DOSES
     Route: 065
     Dates: start: 200810
  4. MABTHERA [Suspect]
     Active Substance: RITUXIMAB
     Dosage: CYCLIC DOSES
     Route: 065
     Dates: start: 201001
  5. ORENCIA [Suspect]
     Active Substance: ABATACEPT
     Indication: PRODUCT USED FOR UNKNOWN INDICATION
     Dosage: LAST DOSE ON 23/MAR/2011
     Route: 041
     Dates: start: 20100830
  6. ENBREL [Suspect]
     Active Substance: ETANERCEPT
     Indication: PRODUCT USED FOR UNKNOWN INDICATION
     Dosage: LAST DOSE IN DEC/2007
     Route: 058
     Dates: start: 20070626
  7. MABTHERA [Suspect]
     Active Substance: RITUXIMAB
     Dosage: CYCLIC DOSES?LAST DOSE ON /JAN/2010
     Route: 065
     Dates: start: 200802
  8. NOVATREX NOS [Suspect]
     Active Substance: AZITHROMYCIN OR METHOTREXATE SODIUM
     Dosage: 2.5 MG, UNK
     Route: 048
     Dates: start: 20070626, end: 201106
  9. TOCILIZUMAB. [Concomitant]
     Active Substance: TOCILIZUMAB
     Indication: RHEUMATOID ARTHRITIS
     Dosage: UNK
     Route: 065
     Dates: start: 20110427
  10. MABTHERA [Suspect]
     Active Substance: RITUXIMAB
     Dosage: CYCLIC DOSES
     Route: 065
     Dates: start: 200905
  11. HUMIRA [Suspect]
     Active Substance: ADALIMUMAB
     Indication: PRODUCT USED FOR UNKNOWN INDICATION
     Dosage: LAST DOSE IN APR/2008
     Route: 058
     Dates: start: 200712
  12. CORTANCYL [Concomitant]
     Active Substance: PREDNISONE
     Indication: RHEUMATOID ARTHRITIS
     Dosage: UNK
     Route: 065
     Dates: start: 1992
  13. MOPRAL [Concomitant]
     Active Substance: OMEPRAZOLE
     Route: 065
  14. ATACAND [Concomitant]
     Active Substance: CANDESARTAN CILEXETIL
     Route: 065

REACTIONS (4)
  - Fall [Unknown]
  - Chest pain [Unknown]
  - Small cell lung cancer [Not Recovered/Not Resolved]
  - Wrist fracture [Unknown]

NARRATIVE: CASE EVENT DATE: 201106
